FAERS Safety Report 5162043-2 (Version None)
Quarter: 2006Q4

REPORT INFORMATION
  Report Type: 
  Country: None (occurrence: None)
  Receive Date: 20061121
  Receipt Date: 20061106
  Transmission Date: 20070319
  Serious: Yes (Other)
  Sender: FDA-Public Use
  Company Number: 232798

PATIENT
  Age: 38 Year
  Sex: Female
  Weight: 54.3 kg

DRUGS (1)
  1. BEVACIZUMAB(BEVACIZUMAB) PWDR + SOLVENT,INFUSION SOLN, 100MG [Suspect]
     Indication: NON-SMALL CELL LUNG CANCER
     Dosage: 15 MG/KG, Q3W, INTRAVENOUS
     Route: 042
     Dates: start: 20051028, end: 20061103

REACTIONS (2)
  - METASTASES TO CENTRAL NERVOUS SYSTEM [None]
  - VASCULITIS [None]
